FAERS Safety Report 9477148 (Version 1)
Quarter: 2013Q3

REPORT INFORMATION
  Report Type: Spontaneous
  Country: US (occurrence: US)
  Receive Date: 20130826
  Receipt Date: 20130826
  Transmission Date: 20140515
  Serious: No
  Sender: FDA-Public Use
  Company Number: US-PFIZER INC-2013242892

PATIENT
  Age: 73 Year
  Sex: Male

DRUGS (8)
  1. SUTENT [Suspect]
     Indication: RENAL CANCER
     Dosage: 50 MG, DAILY, 4 WEEKS ON AND 2 OFF
     Route: 048
     Dates: start: 20130327
  2. LOPID [Concomitant]
     Dosage: UNK
  3. NORVASC [Concomitant]
     Dosage: UNK
  4. ASA [Concomitant]
     Dosage: 81 MG, UNK
  5. CALCIUM [Concomitant]
     Dosage: UNK
  6. IRON [Concomitant]
     Dosage: UNK
  7. VIT B6 [Concomitant]
     Dosage: UNK
  8. VITAMIN B12 [Concomitant]

REACTIONS (1)
  - Contusion [Recovering/Resolving]
